FAERS Safety Report 8416414-9 (Version None)
Quarter: 2012Q2

REPORT INFORMATION
  Report Type: 
  Country: None (occurrence: None)
  Receive Date: 20120606
  Receipt Date: 20120528
  Transmission Date: 20120825
  Serious: Yes (Death)
  Sender: FDA-Public Use
  Company Number: IE-ELI_LILLY_AND_COMPANY-IE201205009502

PATIENT
  Sex: Female

DRUGS (12)
  1. ZIMOVANE [Concomitant]
  2. CALCICHEW-D3 FORTE [Concomitant]
  3. ACETAMINOPHEN [Concomitant]
  4. GALFER [Concomitant]
  5. FUROSEMIDE [Concomitant]
  6. LYRICA [Concomitant]
  7. LANOXIN [Concomitant]
  8. MOVIPREP [Concomitant]
  9. ACETAMINOPHEN W/ CODEINE [Concomitant]
  10. ALDACTONE [Concomitant]
  11. FORTEO [Suspect]
     Indication: OSTEOPOROSIS
     Dosage: 20 UG, UNK
     Route: 058
     Dates: start: 20120420
  12. WARFARIN SODIUM [Concomitant]

REACTIONS (1)
  - DEATH [None]
